FAERS Safety Report 15905294 (Version 1)
Quarter: 2019Q1

REPORT INFORMATION
  Report Type: Spontaneous
  Country: FR (occurrence: FR)
  Receive Date: 20190204
  Receipt Date: 20190204
  Transmission Date: 20190417
  Serious: Yes (Other)
  Sender: FDA-Public Use
  Company Number: PHHY2019FR021890

PATIENT
  Age: 55 Year
  Sex: Female
  Weight: 52 kg

DRUGS (10)
  1. FLANID GE [Suspect]
     Active Substance: TIAPROFENIC ACID
     Dosage: UNK
     Route: 065
  2. SINGULAIR [Concomitant]
     Active Substance: MONTELUKAST SODIUM
     Indication: ASTHMA
     Dosage: UNK
     Route: 065
  3. FLANID GE [Suspect]
     Active Substance: TIAPROFENIC ACID
     Indication: TOOTH ABSCESS
     Dosage: 600 MG, QD (200 MG, TID (3/DAY))
     Route: 048
     Dates: start: 20170327, end: 20170330
  4. XYZALL [Concomitant]
     Active Substance: LEVOCETIRIZINE DIHYDROCHLORIDE
     Indication: ASTHMA
     Dosage: UNK
     Route: 065
  5. SINGULAIR [Concomitant]
     Active Substance: MONTELUKAST SODIUM
     Dosage: LONG-TERM TREATMENT
     Route: 065
  6. XYZALL [Concomitant]
     Active Substance: LEVOCETIRIZINE DIHYDROCHLORIDE
     Indication: HYPERSENSITIVITY
     Dosage: LONG-TERM TREATMENT
     Route: 065
  7. XYZALL [Concomitant]
     Active Substance: LEVOCETIRIZINE DIHYDROCHLORIDE
     Indication: RHINITIS ALLERGIC
  8. AMOXICILLIN. [Suspect]
     Active Substance: AMOXICILLIN
     Indication: INFECTION
     Dosage: 3 OT, QD (1 UNK, UNK)
     Route: 065
     Dates: start: 2018
  9. AMOXICILLIN. [Suspect]
     Active Substance: AMOXICILLIN
     Indication: TOOTH ABSCESS
     Dosage: 3 G, QD (1 G, TID (3/DAY))
     Route: 048
     Dates: start: 20170327, end: 20170402
  10. LANSOPRAZOL [Concomitant]
     Active Substance: LANSOPRAZOLE
     Indication: GASTROOESOPHAGEAL REFLUX DISEASE
     Dosage: UNK
     Route: 065

REACTIONS (6)
  - Gastrointestinal disorder [Recovered/Resolved]
  - Malaise [Not Recovered/Not Resolved]
  - Psychomotor hyperactivity [Not Recovered/Not Resolved]
  - Dizziness [Not Recovered/Not Resolved]
  - Vertigo [Recovered/Resolved]
  - Balance disorder [Recovered/Resolved]

NARRATIVE: CASE EVENT DATE: 20170327
